FAERS Safety Report 15626159 (Version 1)
Quarter: 2018Q4

REPORT INFORMATION
  Report Type: Report from Study
  Country: GB (occurrence: GB)
  Receive Date: 20181116
  Receipt Date: 20181116
  Transmission Date: 20190205
  Serious: Yes (Hospitalization)
  Sender: FDA-Public Use
  Company Number: GB-SA-2018SA293804

PATIENT
  Age: 74 Year
  Sex: Male

DRUGS (4)
  1. CABAZITAXEL [Suspect]
     Active Substance: CABAZITAXEL
     Dosage: 20 MG/M2, UNK
     Dates: start: 20180706, end: 20180706
  2. DOCETAXEL. [Suspect]
     Active Substance: DOCETAXEL
     Dosage: 60 MG/M2
     Route: 042
     Dates: start: 20180413, end: 20180413
  3. DOCETAXEL. [Suspect]
     Active Substance: DOCETAXEL
     Dosage: 60 MG/M2, UNK
     Route: 042
     Dates: start: 20170928, end: 20170928
  4. CABAZITAXEL [Suspect]
     Active Substance: CABAZITAXEL
     Dosage: 20 MG/M2
     Dates: start: 20180928, end: 20180928

REACTIONS (4)
  - Lower respiratory tract infection [Unknown]
  - Malaise [Unknown]
  - Prostate cancer metastatic [Unknown]
  - Confusional state [Unknown]

NARRATIVE: CASE EVENT DATE: 20181021
